FAERS Safety Report 9061425 (Version 1)
Quarter: 2013Q1

REPORT INFORMATION
  Report Type: Spontaneous
  Country: US (occurrence: None)
  Receive Date: 20130211
  Receipt Date: 20130211
  Transmission Date: 20140127
  Serious: Yes (Life-Threatening, Hospitalization)
  Sender: FDA-Public Use
  Company Number: None

PATIENT
  Age: 86 Year
  Sex: Female
  Weight: 63.5 kg

DRUGS (2)
  1. LEVAQUIN [Suspect]
     Dates: start: 20130126, end: 20130129
  2. HEPARIN SODIUM [Suspect]
     Route: 042

REACTIONS (3)
  - Contraindication to medical treatment [None]
  - Abdominal wall haematoma [None]
  - Haemoglobin decreased [None]
